FAERS Safety Report 13756431 (Version 3)
Quarter: 2018Q1

REPORT INFORMATION
  Report Type: Report from Study
  Country: FR (occurrence: FR)
  Receive Date: 20170714
  Receipt Date: 20180105
  Transmission Date: 20180508
  Serious: Yes (Hospitalization, Other)
  Sender: FDA-Public Use
  Company Number: FR-BRISTOL-MYERS SQUIBB COMPANY-BMS-2017-061194

PATIENT
  Age: 57 Year
  Sex: Female

DRUGS (3)
  1. NIVOLUMAB [Suspect]
     Active Substance: NIVOLUMAB
     Indication: PRODUCT USED FOR UNKNOWN INDICATION
     Dosage: UNK
     Route: 065
     Dates: start: 20170727
  2. NIVOLUMAB [Suspect]
     Active Substance: NIVOLUMAB
     Indication: LUNG NEOPLASM MALIGNANT
     Dosage: 150 MG, Q2WK
     Route: 042
     Dates: start: 20170427
  3. NIVOLUMAB [Suspect]
     Active Substance: NIVOLUMAB
     Indication: PRODUCT USED FOR UNKNOWN INDICATION
     Dosage: 150 MG, Q2WK
     Route: 042
     Dates: start: 20170511

REACTIONS (8)
  - Pleural effusion [Recovering/Resolving]
  - C-reactive protein increased [Unknown]
  - Hyperthyroidism [Recovered/Resolved]
  - Lung disorder [Recovered/Resolved]
  - Basedow^s disease [Unknown]
  - Anaemia [Unknown]
  - Arthralgia [Unknown]
  - Interstitial lung disease [Recovering/Resolving]

NARRATIVE: CASE EVENT DATE: 20170526
